FAERS Safety Report 9442409 (Version 1)
Quarter: 2013Q3

REPORT INFORMATION
  Report Type: Spontaneous
  Country: US (occurrence: US)
  Receive Date: 20130806
  Receipt Date: 20130806
  Transmission Date: 20140515
  Serious: No
  Sender: FDA-Public Use
  Company Number: US-GLAXOSMITHKLINE-A1021321A

PATIENT
  Age: 69 Year
  Sex: Female

DRUGS (4)
  1. ADVAIR [Suspect]
     Indication: CHRONIC OBSTRUCTIVE PULMONARY DISEASE
     Dosage: 1PUFF PER DAY
     Route: 055
     Dates: start: 20130329
  2. TRAVATAN [Concomitant]
     Route: 047
  3. COMBIVENT [Concomitant]
  4. TYLENOL PM [Concomitant]

REACTIONS (3)
  - Drug ineffective [Unknown]
  - Oxygen saturation decreased [Unknown]
  - Product quality issue [Unknown]
